FAERS Safety Report 10042499 (Version 2)
Quarter: 2014Q2

REPORT INFORMATION
  Report Type: Spontaneous
  Country: US (occurrence: US)
  Receive Date: 20140327
  Receipt Date: 20140424
  Transmission Date: 20141212
  Serious: Yes (Death, Hospitalization)
  Sender: FDA-Public Use
  Company Number: US-TEVA-470519USA

PATIENT
  Sex: Female

DRUGS (3)
  1. ACTIQ [Suspect]
     Indication: BREAKTHROUGH PAIN
     Dates: start: 20140306, end: 20140306
  2. DILAUDID [Concomitant]
  3. FENTANYL [Concomitant]
     Route: 062

REACTIONS (1)
  - Endometrial cancer metastatic [Fatal]
